FAERS Safety Report 13264115 (Version 1)
Quarter: 2017Q1

REPORT INFORMATION
  Report Type: Spontaneous
  Country: US (occurrence: US)
  Receive Date: 20170222
  Receipt Date: 20170222
  Transmission Date: 20170428
  Serious: No
  Sender: FDA-Public Use
  Company Number: None

PATIENT
  Age: 74 Year
  Sex: Male
  Weight: 60.1 kg

DRUGS (1)
  1. SECUKINUMAB [Suspect]
     Active Substance: SECUKINUMAB
     Route: 058
     Dates: start: 20161204, end: 20161227

REACTIONS (5)
  - Decreased appetite [None]
  - Nausea [None]
  - Vomiting [None]
  - Malaise [None]
  - Fluid intake reduced [None]

NARRATIVE: CASE EVENT DATE: 20161227
